FAERS Safety Report 6822305-7 (Version None)
Quarter: 2010Q3

REPORT INFORMATION
  Report Type: 
  Country: None (occurrence: None)
  Receive Date: 20100707
  Receipt Date: 20100707
  Transmission Date: 20110219
  Serious: No
  Sender: FDA-Public Use
  Company Number: None

PATIENT
  Age: 72 Year
  Sex: Male
  Weight: 86.1834 kg

DRUGS (1)
  1. SAVELLA [Suspect]
     Dosage: SEE ABOVE
     Dates: start: 20100618, end: 20100705

REACTIONS (4)
  - DYSURIA [None]
  - ERECTILE DYSFUNCTION [None]
  - LIBIDO DECREASED [None]
  - URETHRAL PAIN [None]
